FAERS Safety Report 6723938 (Version 7)
Quarter: 2016Q1

REPORT INFORMATION
  Report Type: Spontaneous
  Country: CN (occurrence: CN)
  Receive Date: 20080811
  Receipt Date: 20160219
  Transmission Date: 20160526
  Serious: Yes (Death, Hospitalization, Other)
  Sender: FDA-Public Use
  Company Number: PHHY2008CN16621

PATIENT
  Age: 25 Year
  Sex: Male
  Weight: 59 kg

DRUGS (2)
  1. LAMIVUDINE. [Suspect]
     Active Substance: LAMIVUDINE
     Indication: CHRONIC HEPATITIS B
     Dosage: UNK
     Route: 065
     Dates: start: 20080719
  2. TELBIVUDINE [Suspect]
     Active Substance: TELBIVUDINE
     Indication: CHRONIC HEPATITIS B
     Dosage: 600 MG QD
     Route: 048
     Dates: start: 20071010, end: 20080719

REACTIONS (58)
  - Renal impairment [Fatal]
  - Urine bilirubin increased [Fatal]
  - Blood urea increased [Fatal]
  - Bilirubin conjugated increased [Fatal]
  - Aspartate aminotransferase increased [Fatal]
  - White blood cells urine positive [Fatal]
  - Blood gases abnormal [Fatal]
  - Haemoptysis [Unknown]
  - Renal disorder [Unknown]
  - Blood creatine phosphokinase MB increased [Unknown]
  - Circulatory collapse [Fatal]
  - Vomiting [Unknown]
  - Metabolic acidosis [Unknown]
  - Blood bilirubin increased [Fatal]
  - Hypotension [Fatal]
  - Central venous pressure decreased [Fatal]
  - Pain [Unknown]
  - Chronic hepatitis B [Unknown]
  - Hepatitis B DNA increased [Unknown]
  - Decreased appetite [Fatal]
  - Base excess increased [Fatal]
  - Rhabdomyolysis [Unknown]
  - Blood creatine phosphokinase increased [Unknown]
  - Blood lactate dehydrogenase increased [Unknown]
  - Myalgia [Unknown]
  - Lactic acidosis [Unknown]
  - Fall [Unknown]
  - Oliguria [Fatal]
  - Blood urine present [Fatal]
  - Sinus tachycardia [Fatal]
  - Respiratory failure [Fatal]
  - Heart rate increased [Unknown]
  - Blood potassium decreased [Unknown]
  - Platelet count decreased [Unknown]
  - Acute kidney injury [Unknown]
  - Multiple organ dysfunction syndrome [Fatal]
  - Alanine aminotransferase increased [Fatal]
  - Neutrophil percentage increased [Fatal]
  - Cough [Unknown]
  - Nephrolithiasis [Unknown]
  - Protein urine present [Fatal]
  - Blood uric acid increased [Fatal]
  - Blood bilirubin unconjugated increased [Fatal]
  - Blood pressure immeasurable [Fatal]
  - Dyspnoea [Unknown]
  - Pain in extremity [Unknown]
  - Blood bicarbonate increased [Unknown]
  - Muscular weakness [Unknown]
  - Nausea [Unknown]
  - Asthenia [Unknown]
  - Condition aggravated [Unknown]
  - Generalised oedema [Fatal]
  - Urine ketone body present [Fatal]
  - Blood pH decreased [Fatal]
  - Loss of consciousness [Fatal]
  - Orthopnoea [Fatal]
  - Pulmonary embolism [Unknown]
  - Muscle swelling [Unknown]

NARRATIVE: CASE EVENT DATE: 20080719
